FAERS Safety Report 20375467 (Version 3)
Quarter: 2022Q3

REPORT INFORMATION
  Report Type: Spontaneous
  Country: JP (occurrence: JP)
  Receive Date: 20220125
  Receipt Date: 20220725
  Transmission Date: 20221026
  Serious: Yes (Other)
  Sender: FDA-Public Use
  Company Number: JP-PFIZER INC-202200107471

PATIENT
  Age: 17 Year
  Sex: Male
  Weight: 40 kg

DRUGS (9)
  1. MEROPENEM [Suspect]
     Active Substance: MEROPENEM
     Indication: Febrile neutropenia
     Dosage: UNK
     Route: 041
     Dates: start: 201512
  2. THIOTEPA [Suspect]
     Active Substance: THIOTEPA
     Indication: Medulloblastoma
     Dosage: 272 MG, QD
     Route: 041
     Dates: start: 20211009, end: 20211010
  3. THIOTEPA [Suspect]
     Active Substance: THIOTEPA
     Dosage: 272 MG, QD
     Route: 041
     Dates: start: 20211016, end: 20211017
  4. ALKERAN [Suspect]
     Active Substance: MELPHALAN
     Indication: Medulloblastoma
     Dosage: 95 MG, QD
     Route: 041
     Dates: start: 20211010, end: 20211010
  5. ALKERAN [Suspect]
     Active Substance: MELPHALAN
     Dosage: 95 MG, QD
     Route: 041
     Dates: start: 20211016, end: 20211017
  6. DORIPENEM MONOHYDRATE [Suspect]
     Active Substance: DORIPENEM MONOHYDRATE
     Indication: Febrile neutropenia
     Dosage: 0.5 G, TID
     Route: 041
     Dates: start: 20211021, end: 20211031
  7. MICAFUNGIN SODIUM [Concomitant]
     Active Substance: MICAFUNGIN SODIUM
     Dosage: UNK
     Dates: start: 20211002, end: 20211117
  8. FRAGMIN [Concomitant]
     Active Substance: DALTEPARIN SODIUM
     Dosage: UNK
     Dates: start: 20211008, end: 20211120
  9. MAXIPIME [Concomitant]
     Active Substance: CEFEPIME HYDROCHLORIDE
     Dosage: UNK
     Dates: start: 20211019, end: 20211021

REACTIONS (6)
  - Myelosuppression [Recovered/Resolved]
  - Platelet count decreased [Recovered/Resolved]
  - Eosinophil count increased [Recovering/Resolving]
  - Mucosal disorder [Recovered/Resolved]
  - Diarrhoea [Recovering/Resolving]
  - Pyrexia [Unknown]

NARRATIVE: CASE EVENT DATE: 20211012
